FAERS Safety Report 12085901 (Version 1)
Quarter: 2016Q1

REPORT INFORMATION
  Report Type: Not Available
  Country: None (occurrence: US)
  Receive Date: 20160217
  Receipt Date: 20160217
  Transmission Date: 20160526
  Serious: No
  Sender: FDA-Public Use
  Company Number: US-AKORN-23728

PATIENT
  Age: 2 Year
  Sex: Male

DRUGS (1)
  1. TOBRAMYCIN INJECTION, USP [Suspect]
     Active Substance: TOBRAMYCIN

REACTIONS (5)
  - Product substitution issue [None]
  - Product odour abnormal [None]
  - Drug ineffective [None]
  - Drug effect delayed [None]
  - Drug effect decreased [None]
